FAERS Safety Report 6500355-8 (Version None)
Quarter: 2009Q4

REPORT INFORMATION
  Report Type: 
  Country: None (occurrence: None)
  Receive Date: 20091216
  Receipt Date: 20091204
  Transmission Date: 20100525
  Serious: Yes (Other)
  Sender: FDA-Public Use
  Company Number: DE-ELI_LILLY_AND_COMPANY-DE200911000058

PATIENT
  Sex: Female
  Weight: 60 kg

DRUGS (4)
  1. ZYPREXA [Suspect]
     Indication: PSYCHOTIC BEHAVIOUR
     Dosage: UP TO 10MG, UNKNOWN
     Route: 048
     Dates: start: 20090915, end: 20090929
  2. LORAZEPAM [Concomitant]
     Indication: PSYCHOTIC BEHAVIOUR
     Dosage: 1 MG, UNKNOWN
     Route: 048
     Dates: start: 20090804, end: 20090929
  3. QUETIAPINE [Concomitant]
     Indication: PSYCHOTIC BEHAVIOUR
     Dosage: 100 MG, UNKNOWN
     Route: 048
     Dates: start: 20090804, end: 20090922
  4. CIPRALEX [Concomitant]
     Indication: DEPRESSION
     Dosage: 20 MG, UNKNOWN
     Route: 048
     Dates: start: 20090809, end: 20090929

REACTIONS (1)
  - DIABETES INSIPIDUS [None]
